FAERS Safety Report 12257266 (Version 17)
Quarter: 2018Q2

REPORT INFORMATION
  Report Type: Spontaneous
  Country: US (occurrence: US)
  Receive Date: 20160412
  Receipt Date: 20180426
  Transmission Date: 20180711
  Serious: Yes (Hospitalization, Disabling)
  Sender: FDA-Public Use
  Company Number: US-ACTELION PHARMACEUTICALS US, INC.-A-US2016-132869

PATIENT
  Age: 45 Year
  Sex: Female

DRUGS (45)
  1. ORENITRAM [Suspect]
     Active Substance: TREPROSTINIL
     Dosage: 4 MG, UNK
     Route: 065
  2. HEPARIN [Concomitant]
     Active Substance: HEPARIN SODIUM
     Dosage: UNK
  3. SERTRALINE [Concomitant]
     Active Substance: SERTRALINE HYDROCHLORIDE
  4. FAMOTIDINE. [Concomitant]
     Active Substance: FAMOTIDINE
  5. MELATONIN [Concomitant]
     Active Substance: MELATONIN
  6. OPSUMIT [Suspect]
     Active Substance: MACITENTAN
     Indication: PULMONARY ARTERIAL HYPERTENSION
     Dosage: 10 MG, QD
     Route: 048
     Dates: start: 20160223
  7. LORAZEPAM. [Concomitant]
     Active Substance: LORAZEPAM
  8. ORENITRAM [Suspect]
     Active Substance: TREPROSTINIL
     Dosage: UNK
     Route: 048
     Dates: end: 20160326
  9. ORENITRAM [Suspect]
     Active Substance: TREPROSTINIL
     Dosage: 0.875 MG, TID
     Route: 048
     Dates: start: 20160329
  10. FUROSEMIDE. [Concomitant]
     Active Substance: FUROSEMIDE
     Dosage: UNK
  11. ZOLPIDEM [Concomitant]
     Active Substance: ZOLPIDEM\ZOLPIDEM TARTRATE
  12. NABUMETONE. [Concomitant]
     Active Substance: NABUMETONE
  13. FORMOTEROL [Concomitant]
     Active Substance: FORMOTEROL
  14. TRIAMCINOLONE [Concomitant]
     Active Substance: TRIAMCINOLONE
     Route: 061
  15. CLINDAMYCIN. [Concomitant]
     Active Substance: CLINDAMYCIN
  16. ECOTRIN [Concomitant]
     Active Substance: ASPIRIN
  17. PLAQUENIL [Concomitant]
     Active Substance: HYDROXYCHLOROQUINE SULFATE
  18. REMERON [Concomitant]
     Active Substance: MIRTAZAPINE
  19. IMODIUM [Concomitant]
     Active Substance: LOPERAMIDE HYDROCHLORIDE
     Dosage: 2 MG, UNK
  20. MULTIVITAMIN [Concomitant]
     Active Substance: VITAMINS
  21. HYDROCODONE BITARTRATE AND ACETAMINOPHEN [Concomitant]
     Active Substance: ACETAMINOPHEN\HYDROCODONE BITARTRATE
     Dosage: 10-325 MG
  22. ORENITRAM [Suspect]
     Active Substance: TREPROSTINIL
     Indication: PRODUCT USED FOR UNKNOWN INDICATION
     Dosage: 1 MG, TID
     Route: 048
     Dates: start: 20160326, end: 20160328
  23. REMODULIN [Suspect]
     Active Substance: TREPROSTINIL
     Indication: PRODUCT USED FOR UNKNOWN INDICATION
     Dosage: 1 MG/ML, UNK
     Route: 065
  24. PREDNISONE. [Concomitant]
     Active Substance: PREDNISONE
     Dosage: 10 MG, UNK
  25. PANTOPRAZOLE [Concomitant]
     Active Substance: PANTOPRAZOLE
     Dosage: UNK
  26. HYDROXYCHLOROQUINE [Concomitant]
     Active Substance: HYDROXYCHLOROQUINE
     Dosage: UNK
  27. GABAPENTIN. [Concomitant]
     Active Substance: GABAPENTIN
     Dosage: 300 MG, UNK
  28. VALIUM [Concomitant]
     Active Substance: DIAZEPAM
  29. MIRTAZAPINE. [Concomitant]
     Active Substance: MIRTAZAPINE
     Dosage: 7.5 MG, UNK
  30. HYDROCODONE [Concomitant]
     Active Substance: HYDROCODONE
  31. TYLENOL [Concomitant]
     Active Substance: ACETAMINOPHEN
  32. NORCO [Concomitant]
     Active Substance: ACETAMINOPHEN\HYDROCODONE BITARTRATE
  33. DULERA [Concomitant]
     Active Substance: FORMOTEROL FUMARATE DIHYDRATE\MOMETASONE FUROATE
  34. LIDOCAINE. [Concomitant]
     Active Substance: LIDOCAINE
  35. PREGABALIN. [Concomitant]
     Active Substance: PREGABALIN
  36. ASPIRIN. [Concomitant]
     Active Substance: ASPIRIN
     Dosage: 81 MG, UNK
  37. ORENITRAM [Suspect]
     Active Substance: TREPROSTINIL
     Dosage: 4.625 UNK, UNK
     Route: 065
  38. ORENITRAM [Suspect]
     Active Substance: TREPROSTINIL
     Dosage: 4.5 UNK, UNK
     Route: 065
  39. ASPIRIN. [Concomitant]
     Active Substance: ASPIRIN
     Dosage: UNK
  40. PNEUMOCOCCAL VACCINE POLYVALENT NOS [Concomitant]
     Active Substance: PNEUMOCOCCAL VACCINE POLYVALENT
  41. ONDANSETRON [Concomitant]
     Active Substance: ONDANSETRON
  42. VENTOLIN HFA [Concomitant]
     Active Substance: ALBUTEROL SULFATE
  43. RANITIDINE. [Concomitant]
     Active Substance: RANITIDINE
     Dosage: 150 MG, UNK
  44. VANCOMYCIN [Concomitant]
     Active Substance: VANCOMYCIN
  45. MECLIZINE [Concomitant]
     Active Substance: MECLIZINE HYDROCHLORIDE

REACTIONS (37)
  - Gastrointestinal disorder [Not Recovered/Not Resolved]
  - Decreased appetite [Not Recovered/Not Resolved]
  - Device infusion issue [Recovered/Resolved]
  - Systemic lupus erythematosus [Unknown]
  - Nausea [Not Recovered/Not Resolved]
  - Dyspnoea exertional [Not Recovered/Not Resolved]
  - Injection site warmth [Recovered/Resolved]
  - Diarrhoea [Recovering/Resolving]
  - Depression [Unknown]
  - Presyncope [Unknown]
  - Drug dose omission [Unknown]
  - Cellulitis [Not Recovered/Not Resolved]
  - Catheter site related reaction [Unknown]
  - Chest pain [Recovered/Resolved]
  - Chest discomfort [Recovered/Resolved]
  - Insomnia [Not Recovered/Not Resolved]
  - Weight decreased [Not Recovered/Not Resolved]
  - Blood albumin decreased [Not Recovered/Not Resolved]
  - Dyspnoea [Recovering/Resolving]
  - Headache [Recovering/Resolving]
  - Palpitations [Not Recovered/Not Resolved]
  - Hypovolaemia [Unknown]
  - Pleural effusion [Unknown]
  - Heart rate increased [Recovered/Resolved]
  - Abdominal pain upper [Not Recovered/Not Resolved]
  - Crying [Unknown]
  - Vomiting [Not Recovered/Not Resolved]
  - Rash [Recovered/Resolved]
  - Dizziness [Not Recovered/Not Resolved]
  - Hyperhidrosis [Recovered/Resolved]
  - Pulmonary hypertension [Unknown]
  - Right ventricular failure [Unknown]
  - Abdominal wall disorder [Recovered/Resolved]
  - Injection site erythema [Recovered/Resolved]
  - Abdominal pain [Recovered/Resolved]
  - Anaemia [Unknown]
  - Rhinitis [Unknown]

NARRATIVE: CASE EVENT DATE: 20160309
